FAERS Safety Report 8969657 (Version 1)
Quarter: 2012Q4

REPORT INFORMATION
  Report Type: 
  Country: US (occurrence: US)
  Receive Date: 20121218
  Receipt Date: 20121218
  Transmission Date: 20130627
  Serious: No
  Sender: FDA-Public Use
  Company Number: US-BRISTOL-MYERS SQUIBB COMPANY-16232290

PATIENT

DRUGS (1)
  1. ABILIFY [Suspect]
     Indication: DEPRESSION

REACTIONS (1)
  - Extrapyramidal disorder [Unknown]
